FAERS Safety Report 7432976-2 (Version None)
Quarter: 2011Q2

REPORT INFORMATION
  Report Type: 
  Country: None (occurrence: None)
  Receive Date: 20110422
  Receipt Date: 20110420
  Transmission Date: 20111010
  Serious: No
  Sender: FDA-Public Use
  Company Number: US-PFIZER INC-2011084441

PATIENT
  Sex: Female
  Weight: 61.224 kg

DRUGS (11)
  1. LYRICA [Suspect]
     Indication: NEURALGIA
     Dosage: 75 MG, 2X/DAY
     Route: 048
     Dates: start: 20110301
  2. CALCIUM WITH VITAMIN D [Concomitant]
     Indication: OSTEOPOROSIS
     Dosage: UNK
     Route: 048
  3. LOVASTATIN [Concomitant]
     Indication: BLOOD CHOLESTEROL ABNORMAL
     Dosage: 20 MG, 1X/DAY
     Route: 048
  4. OMEPRAZOLE [Concomitant]
     Indication: DYSPEPSIA
     Dosage: 20 MG, 1X/DAY
     Route: 048
  5. LYRICA [Suspect]
     Indication: COMPLEX REGIONAL PAIN SYNDROME
  6. OMEPRAZOLE [Concomitant]
     Indication: GASTROOESOPHAGEAL REFLUX DISEASE
  7. MULTI-VITAMINS [Concomitant]
     Dosage: UNK
     Route: 048
  8. IPRATROPIUM BROMIDE AND ALBUTEROL SULFATE [Suspect]
     Indication: CHRONIC OBSTRUCTIVE PULMONARY DISEASE
     Dosage: UNK
     Route: 055
  9. ACETYLSALICYLIC ACID [Concomitant]
     Dosage: 162 MG, 1X/DAY
     Route: 048
  10. HYDROXYUREA [Concomitant]
     Indication: PLATELET COUNT INCREASED
     Dosage: 500 MG, UNK
     Route: 048
  11. FOSAMAX [Concomitant]
     Indication: OSTEOPOROSIS
     Dosage: UNK
     Route: 048

REACTIONS (4)
  - OEDEMA PERIPHERAL [None]
  - SOMNOLENCE [None]
  - COUGH [None]
  - DRUG INEFFECTIVE [None]
